FAERS Safety Report 15322234 (Version 1)
Quarter: 2018Q3

REPORT INFORMATION
  Report Type: Spontaneous
  Country: ES (occurrence: ES)
  Receive Date: 20180827
  Receipt Date: 20180827
  Transmission Date: 20181010
  Serious: Yes (Hospitalization)
  Sender: FDA-Public Use
  Company Number: PHHY2018ES082999

PATIENT
  Age: 72 Year
  Sex: Female

DRUGS (7)
  1. PAROXETINE. [Concomitant]
     Active Substance: PAROXETINE
     Indication: ANXIETY
     Dosage: 20 MG, Q24H
     Route: 048
     Dates: start: 2010
  2. DIPROSALIC [Concomitant]
     Active Substance: BETAMETHASONE DIPROPIONATE
     Indication: DERMATITIS
     Dosage: 1 DF, Q72H
     Route: 048
     Dates: start: 2017
  3. PARACETAMOL [Concomitant]
     Active Substance: ACETAMINOPHEN
     Indication: BRONCHITIS
     Dosage: 1 G, Q8H
     Route: 048
     Dates: start: 20141028
  4. SEBIPROX [Concomitant]
     Indication: DERMATITIS
     Dosage: 2 DF, Q72H
     Route: 065
     Dates: start: 2017
  5. CONDROSAN [Concomitant]
     Indication: PAIN
     Dosage: UNK
     Route: 065
  6. CALCIO + VITAMINA D [Concomitant]
     Indication: OSTEOPOROSIS
     Dosage: UNK UNK, QD (600 MG/ 400 UI)
     Route: 048
     Dates: start: 2014
  7. AMOXICILLIN+CLAVULANIC ACID [Suspect]
     Active Substance: AMOXICILLIN\CLAVULANIC ACID
     Indication: NASOPHARYNGITIS
     Dosage: 500 MG, Q8H
     Route: 048
     Dates: start: 20180130, end: 20180205

REACTIONS (6)
  - Nausea [Recovered/Resolved]
  - Diarrhoea haemorrhagic [Recovered/Resolved]
  - Asthenia [Recovered/Resolved]
  - Faeces discoloured [Recovered/Resolved]
  - Malaise [Recovered/Resolved]
  - Abdominal pain upper [Recovered/Resolved]

NARRATIVE: CASE EVENT DATE: 20180206
